FAERS Safety Report 8569548-2 (Version None)
Quarter: 2012Q3

REPORT INFORMATION
  Report Type: 
  Country: None (occurrence: None)
  Receive Date: 20120803
  Receipt Date: 20120302
  Transmission Date: 20120928
  Serious: No
  Sender: FDA-Public Use
  Company Number: US-ABBOTT-12P-163-0910888-00

PATIENT
  Sex: Male
  Weight: 97.61 kg

DRUGS (6)
  1. NIASPAN [Suspect]
     Indication: LIPIDS INCREASED
  2. NIASPAN [Suspect]
  3. EFFIENT [Concomitant]
     Indication: PRODUCT USED FOR UNKNOWN INDICATION
  4. STATIN [Concomitant]
     Indication: PRODUCT USED FOR UNKNOWN INDICATION
  5. ASPIRIN [Concomitant]
     Indication: PRODUCT USED FOR UNKNOWN INDICATION
  6. VITAMIN D [Concomitant]
     Indication: PRODUCT USED FOR UNKNOWN INDICATION
     Dosage: SUPPLEMENT

REACTIONS (10)
  - DRUG INEFFECTIVE [None]
  - SKIN IRRITATION [None]
  - HYPERAESTHESIA [None]
  - VITAMIN D DECREASED [None]
  - BLOOD GLUCOSE DECREASED [None]
  - FLUSHING [None]
  - MYALGIA [None]
  - EAR DISCOMFORT [None]
  - PRURITUS [None]
  - FATIGUE [None]
